FAERS Safety Report 6829019-8 (Version None)
Quarter: 2010Q3

REPORT INFORMATION
  Report Type: 
  Country: None (occurrence: None)
  Receive Date: 20100709
  Receipt Date: 20070227
  Transmission Date: 20110219
  Serious: No
  Sender: FDA-Public Use
  Company Number: US-PFIZER INC-2007016134

PATIENT
  Sex: Female
  Weight: 61.23 kg

DRUGS (9)
  1. CHANTIX [Suspect]
     Dates: start: 20070101, end: 20070101
  2. NEXIUM [Concomitant]
  3. HYDROCHLOROTHIAZIDE [Concomitant]
  4. LIPITOR [Concomitant]
  5. LISINOPRIL [Concomitant]
  6. LEXAPRO [Concomitant]
  7. VERAPAMIL [Concomitant]
  8. VITAMIN E [Concomitant]
  9. MULTI-VITAMINS [Concomitant]

REACTIONS (4)
  - DIARRHOEA [None]
  - INFLUENZA [None]
  - NAUSEA [None]
  - VOMITING [None]
